FAERS Safety Report 5343741-4 (Version None)
Quarter: 2007Q2

REPORT INFORMATION
  Report Type: 
  Country: None (occurrence: None)
  Receive Date: 20070604
  Receipt Date: 20070524
  Transmission Date: 20071010
  Serious: Yes (Other)
  Sender: FDA-Public Use
  Company Number: HQWYE363625MAY07

PATIENT
  Sex: Female

DRUGS (4)
  1. PANTOZOL [Suspect]
     Indication: HYPERCHLORHYDRIA
     Dosage: ^20 TO 40 MG^
     Route: 048
     Dates: start: 20020101, end: 20070101
  2. EUTHYROX [Concomitant]
     Dosage: 75 UG
     Route: 048
  3. ACETYLSALICYLIC ACID SRT [Concomitant]
     Dosage: 300 MG FREQUENCY UNSPECIFIED
     Route: 048
     Dates: start: 20030101
  4. ESTRADIOL VALERATE [Concomitant]
     Indication: MENOPAUSE
     Route: 048
     Dates: start: 20030101

REACTIONS (1)
  - VISUAL ACUITY REDUCED [None]
